FAERS Safety Report 9048618 (Version 1)
Quarter: 2013Q1

REPORT INFORMATION
  Report Type: Spontaneous
  Country: US (occurrence: None)
  Receive Date: 20130130
  Receipt Date: 20130130
  Transmission Date: 20140127
  Serious: Yes (Hospitalization)
  Sender: FDA-Public Use
  Company Number: None

PATIENT
  Age: 49 Year
  Sex: Male
  Weight: 61.3 kg

DRUGS (4)
  1. ADVIL [Suspect]
     Indication: NECK PAIN
     Dosage: 1-2 TABLETS TID PRN ??CHRONIC
     Route: 048
  2. NAPROXEN [Suspect]
     Indication: NECK PAIN
     Dosage: PRN??RECENT
     Route: 048
  3. AMLODIPINE [Concomitant]
  4. CRESTOR [Concomitant]

REACTIONS (5)
  - Upper gastrointestinal haemorrhage [None]
  - Gastric ulcer [None]
  - Haemorrhagic anaemia [None]
  - Chills [None]
  - Transfusion related complication [None]
